FAERS Safety Report 23264779 (Version 1)
Quarter: 2023Q4

REPORT INFORMATION
  Report Type: Spontaneous
  Country: US (occurrence: US)
  Receive Date: 20231206
  Receipt Date: 20231206
  Transmission Date: 20240110
  Serious: Yes (Other)
  Sender: FDA-Public Use
  Company Number: US-ALVOGEN-2023092690

PATIENT
  Age: 80 Year
  Sex: Female
  Weight: 80.51 kg

DRUGS (1)
  1. CLINDAMYCIN [Suspect]
     Active Substance: CLINDAMYCIN
     Indication: Product used for unknown indication

REACTIONS (4)
  - Chest pain [Unknown]
  - Dyspnoea [Unknown]
  - Palpitations [Unknown]
  - Drug hypersensitivity [Unknown]
